FAERS Safety Report 6196029-6 (Version None)
Quarter: 2009Q2

REPORT INFORMATION
  Report Type: 
  Country: None (occurrence: None)
  Receive Date: 20090520
  Receipt Date: 20050502
  Transmission Date: 20091009
  Serious: Yes (Hospitalization)
  Sender: FDA-Public Use
  Company Number: NL-ROCHE-600053

PATIENT
  Sex: Male

DRUGS (12)
  1. CAPECITABINE [Suspect]
     Dosage: FREQUENCY: 2DD
     Route: 048
     Dates: start: 20041007, end: 20041019
  2. IRINOTECAN HCL [Suspect]
     Route: 042
     Dates: start: 20041007, end: 20041019
  3. ZOCOR [Concomitant]
  4. ENALAPRIL [Concomitant]
  5. ACTRAPID [Concomitant]
  6. INSULATARD [Concomitant]
  7. VERAPAMIL [Concomitant]
  8. LANOXIN [Concomitant]
  9. LOPERAMIDE HCL [Concomitant]
  10. GEMFIBROZIL [Concomitant]
  11. FUROSEMIDE [Concomitant]
  12. FENPROCUMON [Concomitant]

REACTIONS (2)
  - MALAISE [None]
  - TYPE 2 DIABETES MELLITUS [None]
